FAERS Safety Report 8664927 (Version 3)
Quarter: 2013Q1

REPORT INFORMATION
  Report Type: Report from Study
  Country: PT (occurrence: PT)
  Receive Date: 20120713
  Receipt Date: 20130118
  Transmission Date: 20140127
  Serious: Yes (Other)
  Sender: FDA-Public Use
  Company Number: US-GILEAD-2012-0057790

PATIENT
  Age: 39 Year
  Sex: Female

DRUGS (4)
  1. EMTRICITABINE/TENOFOVIR DISOPROXIL FUMARATE [Suspect]
     Indication: HIV INFECTION
     Dosage: 1 DF, QD
     Route: 048
     Dates: end: 20120113
  2. EMTRICITABINE/TENOFOVIR DISOPROXIL FUMARATE [Suspect]
     Dosage: 1 DF, QD
     Route: 048
     Dates: start: 20120316
  3. VIRAMUNE [Suspect]
     Indication: HIV INFECTION
     Dosage: 400 MG, QD
     Route: 048
  4. COMBIVIR [Suspect]
     Indication: HIV INFECTION
     Dosage: 2 DF, QD
     Route: 048
     Dates: start: 20120113, end: 20120316

REACTIONS (2)
  - Polyhydramnios [Unknown]
  - Pregnancy [Recovered/Resolved]
